FAERS Safety Report 7108104-X (Version None)
Quarter: 2010Q4

REPORT INFORMATION
  Report Type: 
  Country: None (occurrence: None)
  Receive Date: 20101117
  Receipt Date: 20101112
  Transmission Date: 20110411
  Serious: Yes (Hospitalization)
  Sender: FDA-Public Use
  Company Number: KR-PFIZER INC-2010146291

PATIENT
  Age: 27 Year
  Sex: Female
  Weight: 48 kg

DRUGS (2)
  1. SIROLIMUS [Suspect]
     Indication: RENAL TRANSPLANT
     Dosage: 8 MG, 1X/DAY
     Route: 048
     Dates: start: 20100320
  2. LESCOL XL [Concomitant]
     Indication: HYPERLIPIDAEMIA
     Dosage: UNK
     Dates: start: 20101102

REACTIONS (1)
  - DIABETES MELLITUS [None]
